FAERS Safety Report 11767134 (Version 1)
Quarter: 2015Q4

REPORT INFORMATION
  Report Type: Spontaneous
  Country: US (occurrence: None)
  Receive Date: 20151120
  Receipt Date: 20151120
  Transmission Date: 20160304
  Serious: Yes (Disabling)
  Sender: FDA-Public Use
  Company Number: None

PATIENT
  Age: 35 Year
  Sex: Female
  Weight: 80.74 kg

DRUGS (3)
  1. CONTRAVE [Suspect]
     Active Substance: BUPROPION HYDROCHLORIDE\NALTREXONE HYDROCHLORIDE
     Indication: WEIGHT DECREASED
     Dosage: UP TO 2 PILLS
     Route: 048
     Dates: start: 20150707, end: 20150903
  2. CONTRAVE [Suspect]
     Active Substance: BUPROPION HYDROCHLORIDE\NALTREXONE HYDROCHLORIDE
     Indication: DECREASED APPETITE
     Dosage: UP TO 2 PILLS
     Route: 048
     Dates: start: 20150707, end: 20150903
  3. METFORMIN [Concomitant]
     Active Substance: METFORMIN HYDROCHLORIDE

REACTIONS (9)
  - Gastrooesophageal reflux disease [None]
  - Wrong drug administered [None]
  - Anxiety [None]
  - Decreased appetite [None]
  - Dyspnoea [None]
  - Panic attack [None]
  - Chest pain [None]
  - Blood glucose decreased [None]
  - Nausea [None]

NARRATIVE: CASE EVENT DATE: 20150903
